FAERS Safety Report 5155046-5 (Version None)
Quarter: 2006Q4

REPORT INFORMATION
  Report Type: 
  Country: None (occurrence: None)
  Receive Date: 20061121
  Receipt Date: 20061114
  Transmission Date: 20070319
  Serious: Yes (Hospitalization, Other)
  Sender: FDA-Public Use
  Company Number: US-ELI_LILLY_AND_COMPANY-US200611002692

PATIENT
  Age: 68 Year
  Sex: Male

DRUGS (2)
  1. HUMALOG [Suspect]
     Indication: DIABETES MELLITUS
     Dosage: UNK, UNKNOWN
     Dates: start: 19980101
  2. HUMALOG [Suspect]
     Dosage: UNK, UNKNOWN
     Dates: start: 19980101

REACTIONS (7)
  - CEREBROVASCULAR ACCIDENT [None]
  - FALL [None]
  - LIGAMENT INJURY [None]
  - MUSCULAR WEAKNESS [None]
  - SENSORY LOSS [None]
  - SPINAL DECOMPRESSION [None]
  - VASCULAR BYPASS GRAFT [None]
